FAERS Safety Report 17241519 (Version 2)
Quarter: 2020Q1

REPORT INFORMATION
  Report Type: Spontaneous
  Country: US (occurrence: US)
  Receive Date: 20200107
  Receipt Date: 20200109
  Transmission Date: 20200409
  Serious: Yes (Hospitalization, Other)
  Sender: FDA-Public Use
  Company Number: US-NOVOPROD-704811

PATIENT
  Age: 75 Year
  Sex: Male

DRUGS (2)
  1. TRESIBA [Suspect]
     Active Substance: INSULIN DEGLUDEC
     Indication: TYPE 2 DIABETES MELLITUS
     Dosage: 12 IU, QD
     Route: 058
     Dates: start: 20191004, end: 20191225
  2. TRESIBA [Suspect]
     Active Substance: INSULIN DEGLUDEC
     Indication: TYPE 2 DIABETES MELLITUS
     Dosage: UNK
     Route: 058
     Dates: start: 20191204, end: 20191204

REACTIONS (4)
  - Blood glucose fluctuation [Unknown]
  - Hospitalisation [Recovered/Resolved]
  - Aortic rupture [Unknown]
  - Renal surgery [Unknown]

NARRATIVE: CASE EVENT DATE: 2019
